FAERS Safety Report 8214526-6 (Version None)
Quarter: 2012Q1

REPORT INFORMATION
  Report Type: 
  Country: None (occurrence: None)
  Receive Date: 20120316
  Receipt Date: 20120305
  Transmission Date: 20120608
  Serious: Yes (Hospitalization)
  Sender: FDA-Public Use
  Company Number: US-JNJFOC-20120302395

PATIENT

DRUGS (1)
  1. ZYTIGA [Suspect]
     Indication: ILL-DEFINED DISORDER
     Route: 048
     Dates: start: 20111001

REACTIONS (1)
  - AORTIC DISSECTION [None]
